FAERS Safety Report 5645405-6 (Version None)
Quarter: 2008Q1

REPORT INFORMATION
  Report Type: 
  Country: None (occurrence: None)
  Receive Date: 20080229
  Receipt Date: 20080219
  Transmission Date: 20080703
  Serious: Yes (Death, Other)
  Sender: FDA-Public Use
  Company Number: GR-BRISTOL-MYERS SQUIBB COMPANY-13994439

PATIENT
  Age: 21 Year
  Sex: Male

DRUGS (18)
  1. CYCLOPHOSPHAMIDE [Suspect]
     Indication: LYMPHOCYTIC LEUKAEMIA
  2. VINCRISTINE SULFATE [Suspect]
     Indication: LYMPHOCYTIC LEUKAEMIA
  3. CIPROFLOXACIN [Suspect]
     Indication: PSEUDOMONAS INFECTION
  4. TETRACYCLINE [Suspect]
     Indication: SKIN BACTERIAL INFECTION
  5. IDARUBICIN HCL [Suspect]
     Indication: LYMPHOCYTIC LEUKAEMIA
  6. ASPARAGINASE [Suspect]
     Indication: LYMPHOCYTIC LEUKAEMIA
  7. PREDNISONE TAB [Suspect]
     Indication: LYMPHOCYTIC LEUKAEMIA
  8. GRANULOCYTE CSF [Suspect]
     Indication: PSEUDOMONAS INFECTION
  9. CHLORAMPHENICOL [Suspect]
     Indication: SKIN BACTERIAL INFECTION
  10. LEVOFLOXACIN [Suspect]
     Indication: PSEUDOMONAS INFECTION
     Route: 042
  11. CEFTAZIDIME SODIUM [Suspect]
     Indication: PSEUDOMONAS INFECTION
     Route: 042
  12. TEICOPLANIN [Suspect]
     Indication: PSEUDOMONAS INFECTION
     Route: 042
  13. COLISTIN SULFATE [Suspect]
     Indication: PSEUDOMONAS INFECTION
     Route: 042
  14. VORICONAZOLE [Suspect]
     Indication: PSEUDOMONAS INFECTION
  15. MEROPENEM [Suspect]
     Indication: PSEUDOMONAS INFECTION
  16. PIPERACILLIN AND TAZOBACTAM [Suspect]
     Indication: PSEUDOMONAS INFECTION
  17. METRONIDAZOLE HCL [Suspect]
     Indication: PSEUDOMONAS INFECTION
  18. LINEZOLID [Suspect]
     Indication: PSEUDOMONAS INFECTION

REACTIONS (8)
  - LYMPHANGITIS [None]
  - NECROTISING FASCIITIS [None]
  - NEUTROPENIA [None]
  - PANCYTOPENIA [None]
  - PSEUDOMONAS INFECTION [None]
  - PYREXIA [None]
  - SEPTIC SHOCK [None]
  - STAPHYLOCOCCAL INFECTION [None]
